FAERS Safety Report 20577115 (Version 3)
Quarter: 2022Q2

REPORT INFORMATION
  Report Type: Report from Study
  Country: US (occurrence: US)
  Receive Date: 20220310
  Receipt Date: 20220411
  Transmission Date: 20220721
  Serious: Yes (Death)
  Sender: FDA-Public Use
  Company Number: US-GLAXOSMITHKLINE-US2022021452

PATIENT
  Sex: Female

DRUGS (1)
  1. BELANTAMAB MAFODOTIN [Suspect]
     Active Substance: BELANTAMAB MAFODOTIN
     Indication: Product used for unknown indication
     Dosage: UNK
     Dates: start: 20220127

REACTIONS (9)
  - Disease progression [Fatal]
  - Visual acuity reduced [Unknown]
  - Keratopathy [Unknown]
  - Dry eye [Unknown]
  - Night blindness [Unknown]
  - Malaise [Unknown]
  - Visual impairment [Unknown]
  - Fatigue [Unknown]
  - Hospice care [Unknown]

NARRATIVE: CASE EVENT DATE: 20220101
